FAERS Safety Report 6239003-3 (Version None)
Quarter: 2009Q2

REPORT INFORMATION
  Report Type: 
  Country: None (occurrence: None)
  Receive Date: 20090622
  Receipt Date: 20090612
  Transmission Date: 20091009
  Serious: Yes (Other)
  Sender: FDA-Public Use
  Company Number: B0577384A

PATIENT
  Age: 30 Year
  Sex: Female
  Weight: 71 kg

DRUGS (4)
  1. AUGMENTIN '125' [Suspect]
     Indication: PROPHYLAXIS
     Dosage: 1.2G PER DAY
     Route: 042
     Dates: start: 20090515, end: 20090515
  2. DICLOFENAC SODIUM [Suspect]
     Indication: PAIN
     Dosage: 100MG PER DAY
     Route: 054
     Dates: start: 20090515, end: 20090515
  3. IRON POLYMALTOSE COMPLEX [Suspect]
     Route: 065
  4. CALCIUM+VITAMIN D [Suspect]
     Dosage: 500MG PER DAY
     Route: 065

REACTIONS (6)
  - CONJUNCTIVAL OEDEMA [None]
  - DRUG EXPOSURE DURING PREGNANCY [None]
  - EYE DISORDER [None]
  - HYPERSENSITIVITY [None]
  - PERIORBITAL OEDEMA [None]
  - PRODUCT QUALITY ISSUE [None]
